FAERS Safety Report 4854692-3 (Version None)
Quarter: 2005Q4

REPORT INFORMATION
  Report Type: 
  Country: None (occurrence: None)
  Receive Date: 20051215
  Receipt Date: 20050727
  Transmission Date: 20060501
  Serious: Yes (Hospitalization)
  Sender: FDA-Public Use
  Company Number: US-MERCK-0507USA04323

PATIENT
  Age: 31 Year
  Sex: Male
  Weight: 84 kg

DRUGS (3)
  1. VIOXX [Suspect]
     Indication: NECK PAIN
     Route: 048
     Dates: start: 20040517, end: 20040901
  2. ANCEF [Concomitant]
     Indication: TONSILLITIS
     Route: 065
     Dates: start: 20040816
  3. ANCEF [Concomitant]
     Indication: PHARYNGITIS STREPTOCOCCAL
     Route: 065
     Dates: start: 20040816

REACTIONS (8)
  - ARTERIOSCLEROSIS CORONARY ARTERY [None]
  - BLOOD POTASSIUM DECREASED [None]
  - DEPRESSION [None]
  - MYOCARDIAL INFARCTION [None]
  - PERICARDITIS [None]
  - PHARYNGITIS STREPTOCOCCAL [None]
  - THROMBOSIS [None]
  - TONSILLITIS [None]
